FAERS Safety Report 6091025-1 (Version None)
Quarter: 2009Q1

REPORT INFORMATION
  Report Type: 
  Country: None (occurrence: None)
  Receive Date: 20090225
  Receipt Date: 20090213
  Transmission Date: 20090719
  Serious: Yes (Hospitalization, Other)
  Sender: FDA-Public Use
  Company Number: PHBS2009AU00861

PATIENT
  Age: 55 Year
  Sex: Male

DRUGS (10)
  1. CYCLOSPORINE [Suspect]
     Indication: PYODERMA GANGRENOSUM
     Dosage: 150 MG, BID
  2. IMATINIB MESYLATE [Suspect]
     Indication: CHRONIC MYELOID LEUKAEMIA
  3. MYCOPHENOLATE MOFETIL [Suspect]
     Indication: PYODERMA GANGRENOSUM
     Dosage: 1 G, BID
  4. PREDNISONE [Suspect]
     Indication: PYODERMA GANGRENOSUM
     Dosage: 50 MG/DAY
  5. PREDNISONE [Suspect]
     Dosage: 15 MG DAILY
  6. PREDNISONE [Suspect]
     Dosage: 35 MG/DAY
  7. PREDNISONE [Suspect]
     Dosage: 15 MG/DAY
  8. PREDNISONE [Suspect]
     Dosage: 10 MG/DAY
  9. OCTAGAM [Concomitant]
     Dosage: 30 G/DAY
  10. OCTAGAM [Concomitant]
     Dosage: 2 G

REACTIONS (13)
  - CUSHINGOID [None]
  - DIABETES MELLITUS [None]
  - DISORIENTATION [None]
  - HEADACHE [None]
  - HYPERLIPIDAEMIA [None]
  - HYPERTENSION [None]
  - LETHARGY [None]
  - MENINGITIS CRYPTOCOCCAL [None]
  - OSTEOMYELITIS [None]
  - OSTEOPENIA [None]
  - PYREXIA [None]
  - RENAL IMPAIRMENT [None]
  - VOMITING [None]
